FAERS Safety Report 8949418 (Version 1)
Quarter: 2012Q4

REPORT INFORMATION
  Report Type: 
  Country: US (occurrence: US)
  Receive Date: 20121206
  Receipt Date: 20121206
  Transmission Date: 20130627
  Serious: No
  Sender: FDA-Public Use
  Company Number: US-TEVA-374234USA

PATIENT
  Sex: Female

DRUGS (4)
  1. QNASL [Suspect]
     Indication: RHINITIS SEASONAL
     Dosage: 360 Microgram Daily;
     Route: 045
     Dates: start: 201211
  2. QNASL [Suspect]
     Indication: RHINITIS PERENNIAL
  3. CEFUROXIME AXETIL [Concomitant]
     Indication: SINUSITIS
     Dosage: 1000 Milligram Daily;
     Route: 048
     Dates: start: 201211, end: 201211
  4. AZITHROMYCIN [Concomitant]
     Indication: SINUSITIS
     Dosage: 250 Milligram Daily;
     Route: 048
     Dates: start: 201211, end: 201211

REACTIONS (1)
  - Oral candidiasis [Not Recovered/Not Resolved]
